FAERS Safety Report 17018631 (Version 3)
Quarter: 2019Q4

REPORT INFORMATION
  Report Type: Report from Study
  Country: US (occurrence: US)
  Receive Date: 20191111
  Receipt Date: 20191231
  Transmission Date: 20200122
  Serious: Yes (Life-Threatening, Hospitalization, Other)
  Sender: FDA-Public Use
  Company Number: NVSC2019US030698

PATIENT
  Sex: Female

DRUGS (9)
  1. LEVOTHYROXINE. [Suspect]
     Active Substance: LEVOTHYROXINE
     Indication: HYPOTHYROIDISM
     Dosage: 112 MCG
     Route: 048
     Dates: start: 20191002
  2. ROXANOL [Suspect]
     Active Substance: MORPHINE SULFATE
     Indication: PAIN
     Dosage: 100 MG/ 5ML
     Route: 065
     Dates: start: 20191031
  3. AFINITOR [Suspect]
     Active Substance: EVEROLIMUS
     Indication: PRODUCT USED FOR UNKNOWN INDICATION
     Dosage: UNK
     Route: 065
     Dates: start: 20190925
  4. LORAZEPAM. [Suspect]
     Active Substance: LORAZEPAM
     Indication: ANXIETY
     Dosage: 2 MG/ML
     Route: 048
     Dates: start: 20191021
  5. SCOPOLAMINE [Suspect]
     Active Substance: SCOPOLAMINE
     Indication: NAUSEA
     Dosage: UNK
     Route: 062
     Dates: start: 20191104
  6. ONDANSETRON [Suspect]
     Active Substance: ONDANSETRON
     Indication: NAUSEA
     Dosage: 08 MG
     Route: 048
     Dates: start: 20191030
  7. ALBUTEROL. [Suspect]
     Active Substance: ALBUTEROL
     Indication: DYSPNOEA
     Dosage: 2.5 MG
     Route: 065
     Dates: start: 20191103
  8. LETROZOLE. [Suspect]
     Active Substance: LETROZOLE
     Indication: PRODUCT USED FOR UNKNOWN INDICATION
     Dosage: 2.5 MG
     Route: 048
     Dates: start: 20190929
  9. FENTANYL. [Suspect]
     Active Substance: FENTANYL
     Indication: PAIN
     Dosage: 25 MCG
     Route: 062
     Dates: start: 20191104

REACTIONS (8)
  - Thrombocytopenia [Unknown]
  - Therapy non-responder [Unknown]
  - Metastases to lung [Unknown]
  - Contusion [Unknown]
  - Petechiae [Unknown]
  - Uterine cancer [Unknown]
  - Haemoptysis [Recovered/Resolved]
  - Haematemesis [Unknown]
